FAERS Safety Report 8360901-9 (Version None)
Quarter: 2012Q2

REPORT INFORMATION
  Report Type: 
  Country: None (occurrence: None)
  Receive Date: 20120515
  Receipt Date: 20120508
  Transmission Date: 20120825
  Serious: Yes (Hospitalization)
  Sender: FDA-Public Use
  Company Number: US-INCYTE CORPORATION-2012IN000768

PATIENT
  Sex: Male

DRUGS (11)
  1. SPIRIVA [Concomitant]
  2. FLOMAX [Concomitant]
  3. FLECAINIDE ACETATE [Concomitant]
  4. COUMADIN [Concomitant]
  5. DILTIAZEM [Concomitant]
  6. PLAVIX [Concomitant]
  7. ADVAIR DISKUS 100/50 [Concomitant]
  8. JAKAFI [Suspect]
     Indication: MYELOFIBROSIS
     Dosage: 20 MG, BID
     Route: 048
  9. DIGOXIN [Concomitant]
  10. ALLOPURINOL [Concomitant]
  11. IRON [Concomitant]
     Indication: SUPPLEMENTATION THERAPY

REACTIONS (2)
  - HIP FRACTURE [None]
  - FALL [None]
